FAERS Safety Report 18868748 (Version 2)
Quarter: 2021Q1

REPORT INFORMATION
  Report Type: Report from Study
  Country: US (occurrence: US)
  Receive Date: 20210209
  Receipt Date: 20210217
  Transmission Date: 20210420
  Serious: Yes (Hospitalization, Other)
  Sender: FDA-Public Use
  Company Number: US-ASTRAZENECA-2021A028939

PATIENT
  Sex: Female

DRUGS (1)
  1. LYNPARZA [Suspect]
     Active Substance: OLAPARIB
     Indication: OVARIAN CANCER
     Route: 048
     Dates: start: 20210108

REACTIONS (3)
  - Pleural effusion [Unknown]
  - Peripheral swelling [Unknown]
  - Nausea [Recovered/Resolved]
